FAERS Safety Report 4356036-2 (Version None)
Quarter: 2004Q2

REPORT INFORMATION
  Report Type: 
  Country: None (occurrence: None)
  Receive Date: 20040511
  Receipt Date: 20040430
  Transmission Date: 20050107
  Serious: Yes (Other)
  Sender: FDA-Public Use
  Company Number: CA-ROCHE-366887

PATIENT
  Age: 94 Year
  Sex: Female

DRUGS (6)
  1. TAMIFLU [Suspect]
     Indication: DRUG USE FOR UNKNOWN INDICATION
     Route: 048
  2. ASA [Concomitant]
  3. LACTULOSE [Concomitant]
  4. METOPROLOL [Concomitant]
  5. RANITIDINE [Concomitant]
  6. TYLENOL W/ CODEINE NO. 2 [Concomitant]

REACTIONS (2)
  - CONFUSIONAL STATE [None]
  - CREATININE RENAL CLEARANCE DECREASED [None]
